FAERS Safety Report 8317883-5 (Version None)
Quarter: 2012Q2

REPORT INFORMATION
  Report Type: 
  Country: None (occurrence: None)
  Receive Date: 20120427
  Receipt Date: 20110926
  Transmission Date: 20120825
  Serious: No
  Sender: FDA-Public Use
  Company Number: US-MYLANLABS-2011S1020277

PATIENT
  Sex: Female

DRUGS (5)
  1. DIOVAN [Concomitant]
     Indication: BLOOD PRESSURE INCREASED
  2. CYMBALTA [Concomitant]
  3. METHIMAZOLE [Suspect]
     Indication: HYPERTHYROIDISM
     Route: 048
     Dates: start: 20110801, end: 20110801
  4. METHIMAZOLE [Suspect]
     Route: 048
     Dates: start: 20110915
  5. KLONOPIN [Concomitant]
     Indication: ANXIETY

REACTIONS (1)
  - ALOPECIA [None]
